FAERS Safety Report 5010696-1 (Version None)
Quarter: 2006Q2

REPORT INFORMATION
  Report Type: 
  Country: None (occurrence: None)
  Receive Date: 20060525
  Receipt Date: 20060523
  Transmission Date: 20061013
  Serious: Yes (Life-Threatening, Hospitalization, Disabling, Other)
  Sender: FDA-Public Use
  Company Number: FR-RB-3348-2006

PATIENT
  Age: 34 Year
  Sex: Male
  Weight: 80 kg

DRUGS (3)
  1. PEG-INTRON [Suspect]
     Indication: HEPATITIS C
     Route: 058
     Dates: start: 20060109, end: 20060210
  2. RIBAVIRIN [Suspect]
     Indication: HEPATITIS C
     Dosage: DOSAGE UNKNOWN
     Route: 048
     Dates: start: 20060109, end: 20060210
  3. BUPRENORPHINE HCL [Suspect]
     Indication: DRUG DETOXIFICATION
     Dosage: DOSAGE UNKNOWN
     Route: 065

REACTIONS (3)
  - INJURY [None]
  - PERICARDIAL HAEMORRHAGE [None]
  - SUICIDE ATTEMPT [None]
